FAERS Safety Report 8230509-4 (Version None)
Quarter: 2012Q1

REPORT INFORMATION
  Report Type: 
  Country: None (occurrence: None)
  Receive Date: 20120323
  Receipt Date: 20120314
  Transmission Date: 20120608
  Serious: Yes (Hospitalization)
  Sender: FDA-Public Use
  Company Number: US-BAYER-2011-112545

PATIENT
  Age: 46 Year
  Sex: Female
  Weight: 61 kg

DRUGS (4)
  1. GUAIFENESIN [Concomitant]
     Dosage: UNK
     Dates: start: 20110204
  2. YAZ [Suspect]
     Dosage: UNK
     Dates: start: 20070101, end: 20110101
  3. YASMIN [Suspect]
     Dosage: UNK
     Dates: start: 20070101, end: 20110101
  4. NYQUIL [Concomitant]
     Dosage: UNK
     Dates: start: 20110204

REACTIONS (3)
  - EMOTIONAL DISTRESS [None]
  - CEREBROVASCULAR ACCIDENT [None]
  - THALAMIC INFARCTION [None]
